FAERS Safety Report 5533785-1 (Version None)
Quarter: 2007Q4

REPORT INFORMATION
  Report Type: 
  Country: None (occurrence: None)
  Receive Date: 20071204
  Receipt Date: 20071126
  Transmission Date: 20080405
  Serious: Yes (Hospitalization)
  Sender: FDA-Public Use
  Company Number: US-ELI_LILLY_AND_COMPANY-US200711005939

PATIENT
  Sex: Female
  Weight: 155 kg

DRUGS (40)
  1. BYETTA [Suspect]
     Dosage: 5 UG, 2/D
     Route: 058
     Dates: start: 20051001, end: 20051201
  2. BYETTA [Suspect]
     Dosage: 10 UG, 2/D
     Route: 058
     Dates: start: 20051201, end: 20051201
  3. BYETTA [Suspect]
     Dosage: 5 UG, 2/D
     Route: 058
     Dates: start: 20051201, end: 20060301
  4. BYETTA [Suspect]
     Dosage: 10 UG, 2/D
     Route: 058
     Dates: start: 20060301, end: 20060301
  5. BYETTA [Suspect]
     Dosage: 5 UG, 2/D
     Route: 058
     Dates: start: 20060301
  6. BYETTA [Suspect]
     Dosage: 10 UG, 2/D
     Route: 058
  7. BYETTA [Suspect]
     Dosage: 5 UG, 2/D
     Route: 058
     Dates: end: 20071126
  8. AMARYL [Concomitant]
     Dosage: 4 MG, DAILY (1/D)
     Route: 048
  9. FLONASE [Concomitant]
     Indication: HYPERSENSITIVITY
     Dosage: UNK, UNKNOWN
  10. ZYRTEC [Concomitant]
     Indication: HYPERSENSITIVITY
     Dosage: 10 MG, DAILY (1/D)
     Route: 048
  11. LEVOXYL [Concomitant]
     Indication: HYPOTHYROIDISM
     Dosage: 0.125 MG, DAILY (1/D)
     Route: 048
  12. HYDROXYZINE [Concomitant]
     Indication: ANXIETY
     Dosage: 25 MG, AS NEEDED
     Route: 048
  13. XANAX [Concomitant]
     Indication: ANXIETY
     Dosage: 0.5 MG, EACH EVENING
  14. SINGULAIR [Concomitant]
     Dosage: 10 MG, DAILY (1/D)
     Route: 048
  15. LAXATIVES [Concomitant]
     Indication: LAXATIVE SUPPORTIVE CARE
     Dosage: UNK, DAILY (1/D)
     Route: 048
  16. SENOKOT [Concomitant]
     Indication: LAXATIVE SUPPORTIVE CARE
     Dosage: UNK, DAILY (1/D)
     Route: 048
  17. WELLBUTRIN XL [Concomitant]
     Indication: DEPRESSION
     Dosage: 300 MG, DAILY (1/D)
     Route: 048
  18. CORTICOSTEROIDS, DERMATOLOGICAL PREPARATIONS [Concomitant]
     Indication: ECZEMA
     Dosage: UNK, UNKNOWN
     Route: 061
  19. PROTONIX [Concomitant]
     Indication: GASTROOESOPHAGEAL REFLUX DISEASE
     Dosage: 40 MG, DAILY (1/D)
     Route: 048
  20. REGLAN [Concomitant]
     Indication: GASTROOESOPHAGEAL REFLUX DISEASE
     Dosage: 10 MG, 3/D
     Route: 048
  21. TAGAMET [Concomitant]
     Indication: GASTROOESOPHAGEAL REFLUX DISEASE
     Dosage: 300 MG, UNKNOWN
     Route: 048
  22. LISINOPRIL [Concomitant]
     Indication: HYPERTENSION
     Dosage: 10 MG, DAILY (1/D)
  23. ESTROGENS [Concomitant]
     Indication: HORMONE REPLACEMENT THERAPY
     Dosage: UNK, UNKNOWN
  24. TRAZODONE HCL [Concomitant]
     Indication: INSOMNIA
     Dosage: 225 MG, EACH EVENING
  25. AMBIEN [Concomitant]
     Indication: INSOMNIA
     Dosage: 0.625 MG, UNKNOWN
     Route: 048
     Dates: start: 20071001
  26. POTASSIUM CHLORIDE [Concomitant]
     Indication: MUSCLE SPASMS
     Dosage: 20 MEQ, DAILY (1/D)
     Dates: start: 20030101
  27. LASIX [Concomitant]
     Indication: OEDEMA PERIPHERAL
     Dosage: 80 MG, UNKNOWN
     Route: 048
     Dates: start: 20030101, end: 20060101
  28. LASIX [Concomitant]
     Dosage: 120 MG, DAILY (1/D)
     Route: 048
     Dates: start: 20060101
  29. IMITREX [Concomitant]
     Indication: MIGRAINE
     Dosage: 100 MG, UNKNOWN
     Route: 048
  30. ZOFRAN [Concomitant]
     Indication: NAUSEA
     Dosage: 4 MG, AS NEEDED
  31. CYMBALTA [Concomitant]
     Indication: OSTEOARTHRITIS
     Dosage: 60 MG, DAILY (1/D)
     Route: 048
  32. NORCO [Concomitant]
     Indication: OSTEOARTHRITIS
     Dosage: UNK, AS NEEDED
     Route: 048
  33. ULTRAM [Concomitant]
     Indication: OSTEOARTHRITIS
     Dosage: UNK, AS NEEDED
  34. OXYCONTIN [Concomitant]
     Indication: OSTEOARTHRITIS
     Dosage: 40 MG, EACH MORNING
     Route: 048
  35. OXYCONTIN [Concomitant]
     Dosage: 20 MG, OTHER
     Route: 048
  36. OXYCONTIN [Concomitant]
     Dosage: 40 MG, EACH EVENING
     Route: 048
  37. SKELAXIN [Concomitant]
     Indication: OSTEOARTHRITIS
     Dosage: 800 MG, 3/D
     Route: 048
  38. TYLENOL                                 /SCH/ [Concomitant]
     Indication: OSTEOARTHRITIS
     Dosage: 650 MG, 3/D
     Route: 048
  39. VITAMIN B COMPLEX CAP [Concomitant]
     Indication: PROPHYLAXIS
     Dosage: UNK, DAILY (1/D)
     Route: 048
  40. PREDNISONE TAB [Concomitant]
     Dosage: UNK, UNKNOWN
     Dates: end: 20071101

REACTIONS (15)
  - ANAEMIA [None]
  - BLOOD TRIGLYCERIDES INCREASED [None]
  - CARDIAC FAILURE CONGESTIVE [None]
  - CHRONIC OBSTRUCTIVE PULMONARY DISEASE [None]
  - CONSTIPATION [None]
  - FLUID RETENTION [None]
  - HYPERPARATHYROIDISM [None]
  - NARCOLEPSY [None]
  - NAUSEA [None]
  - PAIN [None]
  - PLEURISY [None]
  - PNEUMONIA [None]
  - PULMONARY CONGESTION [None]
  - RENAL FAILURE CHRONIC [None]
  - SLEEP ATTACKS [None]
